FAERS Safety Report 16233365 (Version 1)
Quarter: 2019Q2

REPORT INFORMATION
  Report Type: Spontaneous
  Country: US (occurrence: US)
  Receive Date: 20190424
  Receipt Date: 20190424
  Transmission Date: 20190711
  Serious: No
  Sender: FDA-Public Use
  Company Number: US-TEVA-2019-US-1041742

PATIENT
  Sex: Female

DRUGS (1)
  1. GENERIC BUPROPION [Suspect]
     Active Substance: BUPROPION
     Indication: DEPRESSION
     Route: 065
     Dates: start: 1999

REACTIONS (5)
  - Joint stiffness [Unknown]
  - Dysgeusia [Unknown]
  - Product substitution issue [Unknown]
  - Feeling jittery [Unknown]
  - Drug ineffective [Unknown]
